FAERS Safety Report 4794259-9 (Version None)
Quarter: 2005Q4

REPORT INFORMATION
  Report Type: 
  Country: None (occurrence: None)
  Receive Date: 20051011
  Receipt Date: 20051006
  Transmission Date: 20060501
  Serious: Yes (Hospitalization)
  Sender: FDA-Public Use
  Company Number: CA-GLAXOSMITHKLINE-A0577566A

PATIENT
  Age: 29 Year
  Sex: Female
  Weight: 63 kg

DRUGS (2)
  1. MEPRON [Suspect]
     Dosage: 1500MG PER DAY
     Route: 048
     Dates: start: 20050520, end: 20050613
  2. CLAVULIN [Concomitant]
     Route: 065

REACTIONS (12)
  - ABASIA [None]
  - APHASIA [None]
  - ASTHENIA [None]
  - GLOSSODYNIA [None]
  - LIP PAIN [None]
  - PHARYNGOLARYNGEAL PAIN [None]
  - RASH [None]
  - RASH MACULO-PAPULAR [None]
  - STEVENS-JOHNSON SYNDROME [None]
  - SWELLING FACE [None]
  - SWOLLEN TONGUE [None]
  - URTICARIA [None]
